FAERS Safety Report 15200432 (Version 4)
Quarter: 2018Q3

REPORT INFORMATION
  Report Type: Report from Study
  Country: DE (occurrence: DE)
  Receive Date: 20180726
  Receipt Date: 20180814
  Transmission Date: 20181010
  Serious: Yes (Death, Life-Threatening, Other)
  Sender: FDA-Public Use
  Company Number: DE-BRISTOL-MYERS SQUIBB COMPANY-BMS-2018-069753

PATIENT
  Age: 60 Year
  Sex: Female
  Weight: 79 kg

DRUGS (23)
  1. NIVOLUMAB [Suspect]
     Active Substance: NIVOLUMAB
     Indication: PRODUCT USED FOR UNKNOWN INDICATION
     Dosage: 240 ABSENT, Q2WK
     Route: 065
     Dates: start: 20170519, end: 20170519
  2. PARACETAMOL [Concomitant]
     Active Substance: ACETAMINOPHEN
     Indication: PROPHYLAXIS
     Dosage: 500 MG, PRN
     Route: 048
     Dates: start: 201704
  3. GRANISETRON [Concomitant]
     Active Substance: GRANISETRON
     Indication: PROPHYLAXIS
     Dosage: 1 MG, UNK
     Route: 042
     Dates: start: 20170714
  4. NIVOLUMAB [Suspect]
     Active Substance: NIVOLUMAB
     Indication: MALIGNANT MELANOMA
     Dosage: 240 ABSENT, Q2WK
     Route: 065
     Dates: start: 20170504, end: 20170504
  5. CELEBREX [Concomitant]
     Active Substance: CELECOXIB
     Indication: CEREBROVASCULAR DISORDER
     Dosage: 400 MG, QD
     Route: 048
     Dates: start: 20150514
  6. IBUPROFEN. [Concomitant]
     Active Substance: IBUPROFEN
     Indication: AUTOIMMUNE DISORDER
     Dosage: 1200 MG, QD
     Route: 048
     Dates: start: 2010, end: 20170514
  7. ASPIRIN. [Concomitant]
     Active Substance: ASPIRIN
     Indication: PRODUCT USED FOR UNKNOWN INDICATION
     Dosage: 100 MG, QD
     Route: 048
     Dates: start: 2014
  8. ALIZAPRIDE [Concomitant]
     Active Substance: ALIZAPRIDE
     Indication: PROPHYLAXIS
     Dosage: 50 MG, PRN
     Route: 048
     Dates: start: 201704
  9. TAVEGIL                            /00137201/ [Concomitant]
     Active Substance: CLEMASTINE FUMARATE
     Indication: PROPHYLAXIS
     Dosage: 2 MG, UNK
     Route: 042
     Dates: start: 20170602
  10. DEXAMETHASONE. [Concomitant]
     Active Substance: DEXAMETHASONE
     Indication: PRODUCT USED FOR UNKNOWN INDICATION
     Dosage: 4 MG, PRN
     Route: 042
     Dates: start: 20180628
  11. PREGABADOR [Concomitant]
     Active Substance: PREGABALIN
     Indication: CEREBROVASCULAR DISORDER
     Dosage: 75 MG, QD
     Route: 048
     Dates: start: 20170517
  12. ACTIQ [Concomitant]
     Active Substance: FENTANYL CITRATE
     Indication: CEREBROVASCULAR DISORDER
     Dosage: 200 OTHER, PRN
     Route: 060
     Dates: start: 20170602
  13. RANITIDIN [Concomitant]
     Active Substance: RANITIDINE HYDROCHLORIDE
     Indication: PROPHYLAXIS
     Dosage: 50 MG, UNK
     Route: 042
     Dates: start: 20170602
  14. METOCLOPRAMIDE. [Concomitant]
     Active Substance: METOCLOPRAMIDE
     Indication: PROPHYLAXIS
     Dosage: 1 DF, UNK
     Route: 048
     Dates: start: 20170602
  15. PREDNISOLONE. [Concomitant]
     Active Substance: PREDNISOLONE
     Indication: PRODUCT USED FOR UNKNOWN INDICATION
     Dosage: 10 MG, QD
     Route: 048
     Dates: start: 20170427
  16. NIVOLUMAB [Suspect]
     Active Substance: NIVOLUMAB
     Indication: LUNG NEOPLASM MALIGNANT
     Dosage: 240 ABSENT, Q2WK
     Route: 065
     Dates: start: 20170420, end: 20170420
  17. PANTOPRAZOLE [Concomitant]
     Active Substance: PANTOPRAZOLE
     Indication: PROPHYLAXIS
     Dosage: 40 MG, QD
     Route: 048
     Dates: start: 2010
  18. PREDNISOLONE. [Concomitant]
     Active Substance: PREDNISOLONE
     Indication: CEREBROVASCULAR DISORDER
     Dosage: 100 MG, ONE TIME DOSE
     Route: 042
     Dates: start: 20170420, end: 20170420
  19. PREDNISOLONE. [Concomitant]
     Active Substance: PREDNISOLONE
     Indication: PRODUCT USED FOR UNKNOWN INDICATION
     Dosage: 100 MG, QD
     Route: 042
     Dates: start: 20170519, end: 20170519
  20. PREDNISOLONE. [Concomitant]
     Active Substance: PREDNISOLONE
     Indication: CEREBROVASCULAR DISORDER
     Dosage: 5 MG, QD
     Route: 048
     Dates: start: 201704, end: 20170427
  21. IDEOS [Concomitant]
     Active Substance: CALCIUM CARBONATE\CHOLECALCIFEROL
     Indication: PROPHYLAXIS
     Dosage: 500 MG, QD
     Route: 048
     Dates: start: 2012, end: 20170514
  22. HALDOL [Concomitant]
     Active Substance: HALOPERIDOL
     Indication: CEREBROVASCULAR DISORDER
     Dosage: 1 DF, QD
     Route: 048
     Dates: start: 20170516
  23. DEXAMETHASONE. [Concomitant]
     Active Substance: DEXAMETHASONE
     Indication: PROPHYLAXIS
     Dosage: 8 MG, UNK
     Route: 042
     Dates: start: 20170602

REACTIONS (11)
  - Malignant neoplasm progression [Fatal]
  - Anaemia [Unknown]
  - Pneumonia [Fatal]
  - Back pain [Unknown]
  - Polyneuropathy [Unknown]
  - Rash [Unknown]
  - Onychomycosis [Unknown]
  - Skin cancer [Unknown]
  - Nausea [Unknown]
  - Hypercalcaemia [Unknown]
  - Fatigue [Unknown]

NARRATIVE: CASE EVENT DATE: 20170514
